FAERS Safety Report 13920562 (Version 1)
Quarter: 2017Q3

REPORT INFORMATION
  Report Type: Spontaneous
  Country: US (occurrence: US)
  Receive Date: 20170829
  Receipt Date: 20170829
  Transmission Date: 20171127
  Serious: No
  Sender: FDA-Public Use
  Company Number: None

PATIENT
  Sex: Female
  Weight: 99 kg

DRUGS (10)
  1. METFORMIN [Concomitant]
     Active Substance: METFORMIN HYDROCHLORIDE
  2. ALBUTEROL. [Concomitant]
     Active Substance: ALBUTEROL
  3. CORTISONE SHOTS [Concomitant]
     Active Substance: CORTISONE\HYDROCORTISONE
  4. GABAPENTIN. [Concomitant]
     Active Substance: GABAPENTIN
  5. MONTELUKAST [Concomitant]
     Active Substance: MONTELUKAST SODIUM
  6. NAPROXEN. [Concomitant]
     Active Substance: NAPROXEN
  7. SYMBICORT [Concomitant]
     Active Substance: BUDESONIDE\FORMOTEROL FUMARATE DIHYDRATE
  8. METFORMIN HCL 1,000MG TA [Suspect]
     Active Substance: METFORMIN HYDROCHLORIDE
     Indication: DIABETES MELLITUS
     Dosage: ?          QUANTITY:01 CAPSULE(S);?
     Route: 048
     Dates: start: 20170427, end: 20170828
  9. SEROQUEL [Concomitant]
     Active Substance: QUETIAPINE FUMARATE
  10. WELLBUTRIN [Concomitant]
     Active Substance: BUPROPION HYDROCHLORIDE

REACTIONS (8)
  - Headache [None]
  - Vomiting [None]
  - Diarrhoea [None]
  - Therapy change [None]
  - Dysgeusia [None]
  - Abdominal pain upper [None]
  - Vision blurred [None]
  - Gastrooesophageal reflux disease [None]

NARRATIVE: CASE EVENT DATE: 20170718
